FAERS Safety Report 7422933-4 (Version None)
Quarter: 2011Q2

REPORT INFORMATION
  Report Type: 
  Country: None (occurrence: None)
  Receive Date: 20110419
  Receipt Date: 20110405
  Transmission Date: 20111010
  Serious: Yes (Death, Hospitalization, Disabling, Other)
  Sender: FDA-Public Use
  Company Number: US-BAYER-200932400NA

PATIENT
  Age: 65 Year
  Sex: Male

DRUGS (18)
  1. ENULOSE [Concomitant]
     Dosage: 15 ML, BID
  2. SPIRONOLACTONE [Concomitant]
     Dosage: 100 MG, BID
     Route: 048
  3. CLOTRIMAZOLE [Concomitant]
  4. NYSTATIN [Concomitant]
  5. PROTONIX [Concomitant]
     Dosage: 40 MG, QD
     Route: 048
  6. MULTI-VITAMIN [Concomitant]
  7. ALPHAGAN [Concomitant]
  8. SORAFENIB [Suspect]
     Dosage: 400 MG, BID
     Route: 048
     Dates: start: 20080813, end: 20090408
  9. COMBIVENT [Concomitant]
     Dosage: 90 ?G, UNK
     Route: 055
  10. PROPRANOLOL [Concomitant]
     Dosage: 20 MG, BID
     Route: 048
  11. SORAFENIB [Suspect]
     Indication: HEPATIC NEOPLASM MALIGNANT
     Dosage: 200 MG, BID
     Route: 048
     Dates: start: 20080728, end: 20080813
  12. CILOXAN [Concomitant]
  13. FLUOXETINE [Concomitant]
     Dosage: 20 MG, QD
  14. PILOCARPINE [Concomitant]
     Dosage: UNK UNK, TID
  15. COMPAZINE [Concomitant]
     Indication: NAUSEA
     Dosage: 10 MG, PRN
     Route: 048
  16. XALATAN [Concomitant]
  17. FUROSEMIDE [Concomitant]
     Dosage: 40 MG, BID
  18. PROCTOSOL HC [Concomitant]
     Route: 054

REACTIONS (4)
  - PERIPHERAL VASCULAR DISORDER [None]
  - HEPATIC NEOPLASM MALIGNANT [None]
  - DEATH [None]
  - GANGRENE [None]
